FAERS Safety Report 19368050 (Version 1)
Quarter: 2021Q2

REPORT INFORMATION
  Report Type: Spontaneous
  Country: US (occurrence: US)
  Receive Date: 20210603
  Receipt Date: 20210603
  Transmission Date: 20210717
  Serious: Yes (Other)
  Sender: FDA-Public Use
  Company Number: US-ELI_LILLY_AND_COMPANY-US202106000128

PATIENT
  Sex: Female

DRUGS (3)
  1. TALTZ [Suspect]
     Active Substance: IXEKIZUMAB
     Indication: PRODUCT USED FOR UNKNOWN INDICATION
     Dosage: UNK UNK, UNKNOWN
     Route: 065
  2. HUMIRA [Suspect]
     Active Substance: ADALIMUMAB
     Indication: PSORIATIC ARTHROPATHY
  3. HUMIRA [Suspect]
     Active Substance: ADALIMUMAB
     Indication: PSORIASIS
     Dosage: UNK UNK, UNKNOWN
     Route: 065
     Dates: start: 2015, end: 20210315

REACTIONS (13)
  - Headache [Not Recovered/Not Resolved]
  - Injection site swelling [Unknown]
  - Weight increased [Not Recovered/Not Resolved]
  - Gene mutation [Unknown]
  - Vomiting [Unknown]
  - Psoriasis [Unknown]
  - Rubber sensitivity [Unknown]
  - Pain [Unknown]
  - Diarrhoea [Unknown]
  - Nausea [Unknown]
  - Injection site scar [Unknown]
  - Temperature intolerance [Unknown]
  - Blood folate decreased [Unknown]

NARRATIVE: CASE EVENT DATE: 2019
